FAERS Safety Report 11452265 (Version 1)
Quarter: 2015Q3

REPORT INFORMATION
  Report Type: Spontaneous
  Country: US (occurrence: None)
  Receive Date: 20150902
  Receipt Date: 20150902
  Transmission Date: 20151125
  Serious: Yes (Other)
  Sender: FDA-Public Use
  Company Number: None

PATIENT
  Age: 57 Year
  Sex: Female

DRUGS (1)
  1. COPAXONE [Suspect]
     Active Substance: GLATIRAMER ACETATE
     Indication: MULTIPLE SCLEROSIS
     Dosage: 40MG  THREE TIMES A WEEK SUB-Q
     Route: 058
     Dates: start: 20141120, end: 20150529

REACTIONS (2)
  - Chills [None]
  - Tremor [None]

NARRATIVE: CASE EVENT DATE: 20150529
